FAERS Safety Report 7605641-6 (Version None)
Quarter: 2011Q3

REPORT INFORMATION
  Report Type: 
  Country: None (occurrence: None)
  Receive Date: 20110713
  Receipt Date: 20110713
  Transmission Date: 20111222
  Serious: Yes (Life-Threatening, Hospitalization)
  Sender: FDA-Public Use
  Company Number: None

PATIENT
  Sex: Male
  Weight: 81.646 kg

DRUGS (4)
  1. LIPITOR [Interacting]
  2. SKELAXIN [Suspect]
     Indication: BACK PAIN
     Dosage: 800 MG
     Route: 048
     Dates: start: 20110703, end: 20110708
  3. ATENOLOL [Interacting]
  4. CARDURA [Interacting]

REACTIONS (1)
  - ANAPHYLACTIC REACTION [None]
